FAERS Safety Report 25476528 (Version 2)
Quarter: 2025Q3

REPORT INFORMATION
  Report Type: Spontaneous
  Country: CA (occurrence: CA)
  Receive Date: 20250625
  Receipt Date: 20250806
  Transmission Date: 20251021
  Serious: Yes (Death, Other)
  Sender: TEVA
  Company Number: CA-TEVA-VS-3344155

PATIENT
  Age: 74 Year
  Sex: Female

DRUGS (24)
  1. FLUCONAZOLE [Suspect]
     Active Substance: FLUCONAZOLE
     Indication: Amoebiasis
     Route: 065
  2. FLUCONAZOLE [Suspect]
     Active Substance: FLUCONAZOLE
     Indication: Amoebiasis
     Route: 065
  3. FLUCONAZOLE [Suspect]
     Active Substance: FLUCONAZOLE
     Indication: Amoebiasis
     Route: 065
  4. FLUCONAZOLE [Suspect]
     Active Substance: FLUCONAZOLE
     Indication: Amoebiasis
     Route: 065
  5. AZITHROMYCIN [Suspect]
     Active Substance: AZITHROMYCIN
     Indication: Amoebiasis
     Route: 065
  6. AZITHROMYCIN [Suspect]
     Active Substance: AZITHROMYCIN
     Indication: Amoebiasis
     Route: 065
  7. AZITHROMYCIN [Suspect]
     Active Substance: AZITHROMYCIN
     Indication: Amoebiasis
     Route: 065
  8. AZITHROMYCIN [Suspect]
     Active Substance: AZITHROMYCIN
     Indication: Amoebiasis
     Route: 065
  9. FLUCYTOSINE [Suspect]
     Active Substance: FLUCYTOSINE
     Indication: Amoebiasis
     Route: 065
  10. FLUCYTOSINE [Suspect]
     Active Substance: FLUCYTOSINE
     Indication: Amoebiasis
     Route: 065
  11. FLUCYTOSINE [Suspect]
     Active Substance: FLUCYTOSINE
     Indication: Amoebiasis
     Route: 065
  12. FLUCYTOSINE [Suspect]
     Active Substance: FLUCYTOSINE
     Indication: Amoebiasis
     Route: 065
  13. MILTEFOSINE [Suspect]
     Active Substance: MILTEFOSINE
     Indication: Amoebiasis
     Route: 065
  14. MILTEFOSINE [Suspect]
     Active Substance: MILTEFOSINE
     Indication: Amoebiasis
     Route: 065
  15. MILTEFOSINE [Suspect]
     Active Substance: MILTEFOSINE
     Indication: Amoebiasis
     Route: 065
  16. MILTEFOSINE [Suspect]
     Active Substance: MILTEFOSINE
     Indication: Amoebiasis
     Route: 065
  17. SULFAMETHOXAZOLE\TRIMETHOPRIM [Suspect]
     Active Substance: SULFAMETHOXAZOLE\TRIMETHOPRIM
     Indication: Amoebiasis
     Route: 065
  18. SULFAMETHOXAZOLE\TRIMETHOPRIM [Suspect]
     Active Substance: SULFAMETHOXAZOLE\TRIMETHOPRIM
     Indication: Amoebiasis
     Route: 065
  19. SULFAMETHOXAZOLE\TRIMETHOPRIM [Suspect]
     Active Substance: SULFAMETHOXAZOLE\TRIMETHOPRIM
     Indication: Amoebiasis
     Route: 065
  20. SULFAMETHOXAZOLE\TRIMETHOPRIM [Suspect]
     Active Substance: SULFAMETHOXAZOLE\TRIMETHOPRIM
     Indication: Amoebiasis
     Route: 065
  21. PENTAMIDINE ISETHIONATE [Suspect]
     Active Substance: PENTAMIDINE ISETHIONATE
     Indication: Amoebiasis
     Route: 065
  22. PENTAMIDINE ISETHIONATE [Suspect]
     Active Substance: PENTAMIDINE ISETHIONATE
     Indication: Amoebiasis
     Route: 042
  23. PENTAMIDINE ISETHIONATE [Suspect]
     Active Substance: PENTAMIDINE ISETHIONATE
     Indication: Amoebiasis
     Route: 042
  24. PENTAMIDINE ISETHIONATE [Suspect]
     Active Substance: PENTAMIDINE ISETHIONATE
     Indication: Amoebiasis
     Route: 065

REACTIONS (3)
  - Drug ineffective for unapproved indication [Fatal]
  - Drug ineffective [Fatal]
  - Off label use [Fatal]
